FAERS Safety Report 4538064-7 (Version None)
Quarter: 2004Q4

REPORT INFORMATION
  Report Type: 
  Country: None (occurrence: None)
  Receive Date: 20041216
  Receipt Date: 20041203
  Transmission Date: 20050328
  Serious: Yes (Death, Hospitalization)
  Sender: FDA-Public Use
  Company Number: WSDF_00421

PATIENT
  Age: 62 Year
  Sex: Female
  Weight: 133 kg

DRUGS (11)
  1. WINRHO SDF [Suspect]
     Indication: IDIOPATHIC THROMBOCYTOPENIC PURPURA
     Dosage: 60.1 MCG/KG ONCE IV
     Route: 042
     Dates: start: 20040804, end: 20040804
  2. PREDNISONE [Concomitant]
  3. CORGARD [Concomitant]
  4. INSULIN [Concomitant]
  5. XALATAN [Concomitant]
  6. CALCIUM [Concomitant]
  7. RIVA-D [Concomitant]
  8. MONOPRIL [Concomitant]
  9. FUROSEMIDE [Concomitant]
  10. ALPRAZOLAM [Concomitant]
  11. LORAZEPAM [Concomitant]

REACTIONS (35)
  - AGITATION [None]
  - ANURIA [None]
  - ASTHENIA [None]
  - BACK PAIN [None]
  - BLOOD CREATINE PHOSPHOKINASE INCREASED [None]
  - BLOOD CREATININE INCREASED [None]
  - BLOOD GLUCOSE FLUCTUATION [None]
  - CALCINOSIS [None]
  - CARDIO-RESPIRATORY ARREST [None]
  - CHROMATURIA [None]
  - CONFUSIONAL STATE [None]
  - CORONARY ARTERY DISEASE [None]
  - DIARRHOEA [None]
  - DISSEMINATED INTRAVASCULAR COAGULATION [None]
  - DYSPNOEA [None]
  - ELECTROCARDIOGRAM ABNORMAL [None]
  - HAEMOGLOBINURIA [None]
  - HAEMOLYSIS [None]
  - HYPERGLYCAEMIA [None]
  - HYPERTENSION [None]
  - HYPOGLYCAEMIA [None]
  - HYPOTENSION [None]
  - INTERNATIONAL NORMALISED RATIO INCREASED [None]
  - JAUNDICE [None]
  - MEDICATION ERROR [None]
  - NEPHROLITHIASIS [None]
  - OCULAR ICTERUS [None]
  - OXYGEN SATURATION DECREASED [None]
  - PANCREATIC CYST [None]
  - PORTAL HYPERTENSION [None]
  - RENAL TUBULAR NECROSIS [None]
  - SEPTIC SHOCK [None]
  - TACHYCARDIA [None]
  - TACHYPNOEA [None]
  - TRANSFUSION REACTION [None]
